FAERS Safety Report 12943205 (Version 1)
Quarter: 2016Q4

REPORT INFORMATION
  Report Type: Spontaneous
  Country: US (occurrence: US)
  Receive Date: 20161115
  Receipt Date: 20161115
  Transmission Date: 20170207
  Serious: No
  Sender: FDA-Public Use
  Company Number: US-GLAXOSMITHKLINE-US2016166865

PATIENT
  Age: 68 Year
  Sex: Female

DRUGS (4)
  1. FLOVENT [Suspect]
     Active Substance: FLUTICASONE PROPIONATE
     Dosage: 1 PUFF(S), BID
     Dates: start: 20160830, end: 20160906
  2. PREDNISONE. [Concomitant]
     Active Substance: PREDNISONE
     Dosage: UNK
     Dates: end: 2016
  3. CLINDAMYCIN. [Concomitant]
     Active Substance: CLINDAMYCIN
     Dosage: UNK
     Dates: end: 2016
  4. FLOVENT [Suspect]
     Active Substance: FLUTICASONE PROPIONATE
     Indication: DYSPNOEA
     Dosage: 2 PUFF(S), BID
     Route: 055
     Dates: start: 20160823

REACTIONS (7)
  - Dysphonia [Recovering/Resolving]
  - Laryngeal pain [Unknown]
  - Vocal cord disorder [Unknown]
  - Oropharyngeal pain [Recovering/Resolving]
  - Throat irritation [Recovering/Resolving]
  - Intentional product use issue [Unknown]
  - Upper respiratory tract irritation [Recovering/Resolving]

NARRATIVE: CASE EVENT DATE: 201608
